FAERS Safety Report 4888530-X (Version None)
Quarter: 2005Q4

REPORT INFORMATION
  Report Type: 
  Country: None (occurrence: None)
  Receive Date: 20051215
  Receipt Date: 20050801
  Transmission Date: 20060501
  Serious: Yes (Other)
  Sender: FDA-Public Use
  Company Number: 2005109491

PATIENT
  Sex: Female
  Weight: 61.2356 kg

DRUGS (4)
  1. BEXTRA [Suspect]
     Indication: ARTHRITIS
     Dosage: 20 MG (20 MG, 1 IN 1 D), ORAL
     Route: 048
     Dates: start: 20010101
  2. CELEBREX [Suspect]
     Indication: ARTHRITIS
     Dosage: 200 MG (200 MG, 1 IN 1 D), UNKNOWN
     Route: 065
     Dates: start: 20050101
  3. RELAFEN [Concomitant]
  4. MOBIC [Concomitant]

REACTIONS (3)
  - CATARACT [None]
  - DRUG INEFFECTIVE [None]
  - OSTEOARTHRITIS [None]
